FAERS Safety Report 7816330-7 (Version None)
Quarter: 2011Q4

REPORT INFORMATION
  Report Type: 
  Country: None (occurrence: None)
  Receive Date: 20111017
  Receipt Date: 20111010
  Transmission Date: 20120403
  Serious: Yes (Other)
  Sender: FDA-Public Use
  Company Number: FR-BIOGENIDEC-2008BI010596

PATIENT
  Age: 38 Year
  Sex: Female

DRUGS (3)
  1. TYSABRI [Suspect]
     Indication: MULTIPLE SCLEROSIS
     Dosage: BASED ON LMP.
     Route: 042
     Dates: start: 20071217, end: 20080218
  2. TYSABRI [Suspect]
     Route: 042
     Dates: start: 20080721
  3. MODAFINIL [Concomitant]
     Dates: end: 20080301

REACTIONS (2)
  - PREGNANCY [None]
  - ABORTION SPONTANEOUS [None]
